FAERS Safety Report 5169839-1 (Version None)
Quarter: 2006Q4

REPORT INFORMATION
  Report Type: 
  Country: None (occurrence: None)
  Receive Date: 20061212
  Receipt Date: 20061116
  Transmission Date: 20070319
  Serious: No
  Sender: FDA-Public Use
  Company Number: US-AMGEN-US200462

PATIENT
  Sex: Female

DRUGS (7)
  1. SENSIPAR [Suspect]
     Indication: HYPERPARATHYROIDISM SECONDARY
  2. EPOGEN [Suspect]
     Indication: DIALYSIS
     Dates: start: 20030101
  3. CALCITRIOL [Concomitant]
  4. RENAGEL [Concomitant]
  5. LISINOPRIL [Concomitant]
  6. VITARENAL [Concomitant]
  7. INFED [Concomitant]

REACTIONS (3)
  - BLOOD PARATHYROID HORMONE INCREASED [None]
  - HYPOCALCAEMIA [None]
  - THERAPEUTIC RESPONSE DECREASED [None]
